FAERS Safety Report 9151805 (Version 1)
Quarter: 2013Q1

REPORT INFORMATION
  Report Type: Spontaneous
  Country: US (occurrence: US)
  Receive Date: 20130308
  Receipt Date: 20130308
  Transmission Date: 20140127
  Serious: Yes (Hospitalization, Other)
  Sender: FDA-Public Use
  Company Number: US-TARO-2013P1002893

PATIENT
  Age: 61 Year
  Sex: Male
  Weight: 88 kg

DRUGS (16)
  1. WARFARIN SODIUM TABLETS USP 3MG [Suspect]
     Indication: AORTIC VALVE REPLACEMENT
     Route: 048
     Dates: start: 20130224, end: 20130224
  2. WARFARIN SODIUM TABLETS USP 3MG [Suspect]
     Indication: AORTIC VALVE REPLACEMENT
     Route: 048
     Dates: start: 20130226, end: 20130226
  3. WARFARIN SODIUM TABLETS USP 3MG [Suspect]
     Indication: AORTIC VALVE REPLACEMENT
     Route: 048
     Dates: start: 20130227
  4. WARFARIN SODIUM TABLETS USP 5MG [Suspect]
     Indication: AORTIC VALVE REPLACEMENT
     Route: 048
     Dates: start: 20130217, end: 20130218
  5. WARFARIN SODIUM TABLETS USP 5MG [Suspect]
     Indication: AORTIC VALVE REPLACEMENT
     Route: 048
     Dates: start: 20130219, end: 20130221
  6. WARFARIN SODIUM TABLETS USP 5MG [Suspect]
     Indication: AORTIC VALVE REPLACEMENT
     Route: 048
     Dates: start: 20130223, end: 20130223
  7. FLOMAX [Concomitant]
     Dates: start: 20130217
  8. METOPROLOL [Concomitant]
     Dates: start: 20130217
  9. OXYCODONE [Concomitant]
     Dates: start: 20130217
  10. NORTRIPTYLINE [Concomitant]
  11. MULTIVITAMIN [Concomitant]
  12. FOLIC ACID [Concomitant]
  13. VITAMIN D [Concomitant]
  14. PROBIOTICS [Concomitant]
  15. STOOL SOFTENER [Concomitant]
     Dates: start: 20130217
  16. LOVENOX [Concomitant]
     Dates: start: 20130219

REACTIONS (4)
  - International normalised ratio fluctuation [Not Recovered/Not Resolved]
  - Cardiac tamponade [Recovered/Resolved]
  - Migraine [Not Recovered/Not Resolved]
  - International normalised ratio increased [Unknown]
